FAERS Safety Report 11322973 (Version 1)
Quarter: 2015Q3

REPORT INFORMATION
  Report Type: Report from Study
  Country: US (occurrence: US)
  Receive Date: 20150730
  Receipt Date: 20150730
  Transmission Date: 20151125
  Serious: Yes (Other)
  Sender: FDA-Public Use
  Company Number: PHEH2015US010360

PATIENT
  Age: 41 Year
  Sex: Female
  Weight: 66.67 kg

DRUGS (2)
  1. VITAMIN D3 [Concomitant]
     Active Substance: CHOLECALCIFEROL
     Indication: PRODUCT USED FOR UNKNOWN INDICATION
     Route: 065
  2. GILENYA [Suspect]
     Active Substance: FINGOLIMOD HYDROCHLORIDE
     Indication: RELAPSING-REMITTING MULTIPLE SCLEROSIS
     Dosage: 0.5 MG, QD
     Route: 048
     Dates: start: 201305

REACTIONS (10)
  - Multiple sclerosis relapse [Unknown]
  - Muscle spasticity [Unknown]
  - Paraparesis [Unknown]
  - Monoparesis [Unknown]
  - Balance disorder [Unknown]
  - Malaise [Unknown]
  - Ataxia [Unknown]
  - Reflexes abnormal [Unknown]
  - Gait disturbance [Unknown]
  - Fatigue [Unknown]

NARRATIVE: CASE EVENT DATE: 201501
